FAERS Safety Report 7557235-9 (Version None)
Quarter: 2011Q2

REPORT INFORMATION
  Report Type: 
  Country: None (occurrence: None)
  Receive Date: 20110620
  Receipt Date: 20110615
  Transmission Date: 20111010
  Serious: No
  Sender: FDA-Public Use
  Company Number: US-MYLANLABS-2011S1007110

PATIENT
  Age: 80 Year
  Sex: Female
  Weight: 53.07 kg

DRUGS (3)
  1. PERFOROMIST [Suspect]
     Route: 055
     Dates: start: 20110501
  2. COUMADIN [Concomitant]
  3. PERFOROMIST [Suspect]
     Indication: RESPIRATORY DISORDER
     Route: 055
     Dates: start: 20110321, end: 20110402

REACTIONS (1)
  - WHEEZING [None]
